FAERS Safety Report 16171399 (Version 2)
Quarter: 2019Q2

REPORT INFORMATION
  Report Type: Report from Study
  Country: JP (occurrence: JP)
  Receive Date: 20190408
  Receipt Date: 20190618
  Transmission Date: 20190711
  Serious: Yes (Death, Other)
  Sender: FDA-Public Use
  Company Number: JP-SHIRE-JP201911055AA

PATIENT
  Age: 4 Year
  Sex: Female

DRUGS (1)
  1. VELAGLUCERASE ALFA [Suspect]
     Active Substance: VELAGLUCERASE ALFA
     Indication: GAUCHER^S DISEASE
     Dosage: 4 DOSAGE FORM, UNKNOWN
     Route: 042
     Dates: start: 20161013, end: 20190315

REACTIONS (4)
  - Acute kidney injury [Not Recovered/Not Resolved]
  - Multiple organ dysfunction syndrome [Unknown]
  - Coagulopathy [Not Recovered/Not Resolved]
  - Pneumonia [Fatal]

NARRATIVE: CASE EVENT DATE: 201903
